FAERS Safety Report 5076655-8 (Version None)
Quarter: 2006Q3

REPORT INFORMATION
  Report Type: 
  Country: None (occurrence: None)
  Receive Date: 20060810
  Receipt Date: 20060621
  Transmission Date: 20061208
  Serious: Yes (Hospitalization)
  Sender: FDA-Public Use
  Company Number: US-AVENTIS-200615381US

PATIENT
  Sex: Female

DRUGS (7)
  1. LASIX [Suspect]
     Indication: HYPERTENSION
     Route: 048
     Dates: start: 20050621
  2. TOPROL-XL [Suspect]
     Indication: BLOOD PRESSURE INCREASED
     Route: 048
     Dates: start: 20050621
  3. HYDROCHLOROTHIAZIDE [Suspect]
     Indication: HYPERTENSION
     Route: 048
     Dates: start: 20040610
  4. ATENOLOL [Concomitant]
     Dosage: DOSE: UNKNOWN
     Dates: start: 20040610, end: 20050620
  5. IRON [Concomitant]
     Dosage: DOSE: UNKNOWN
     Dates: start: 20040614
  6. TIAGABINE HCL [Concomitant]
     Indication: GENERALISED ANXIETY DISORDER
     Route: 048
     Dates: start: 20041221, end: 20050720
  7. TIAGABINE HCL [Concomitant]
     Route: 048
     Dates: start: 20050721, end: 20050729

REACTIONS (13)
  - ANXIETY [None]
  - BLOOD POTASSIUM DECREASED [None]
  - BLOOD PRESSURE INCREASED [None]
  - CARDIAC FLUTTER [None]
  - CHEST DISCOMFORT [None]
  - HYPERTENSION [None]
  - HYPOKALAEMIA [None]
  - MITRAL VALVE INCOMPETENCE [None]
  - PALPITATIONS [None]
  - PANIC ATTACK [None]
  - PULMONARY VALVE INCOMPETENCE [None]
  - SUPRAVENTRICULAR TACHYCARDIA [None]
  - VENTRICULAR HYPERTROPHY [None]
